FAERS Safety Report 20154575 (Version 1)
Quarter: 2021Q4

REPORT INFORMATION
  Report Type: Spontaneous
  Country: GB (occurrence: GB)
  Receive Date: 20211207
  Receipt Date: 20211207
  Transmission Date: 20220303
  Serious: Yes (Hospitalization)
  Sender: FDA-Public Use
  Company Number: None

PATIENT
  Sex: Female

DRUGS (4)
  1. CARBOPLATIN [Suspect]
     Active Substance: CARBOPLATIN
     Indication: Product used for unknown indication
     Dosage: NEXT DOSE 26-APR-21 ( FOR 3 COURSES)
     Dates: start: 20210405
  2. PACLITAXEL [Suspect]
     Active Substance: PACLITAXEL
     Indication: Product used for unknown indication
     Dates: start: 20210405
  3. FOLIC ACID [Concomitant]
     Active Substance: FOLIC ACID
     Dosage: ONE TO BE TAKEN EACH DAY, 112?TABLET
     Dates: start: 20210331
  4. Pfizer Biontech [Concomitant]
     Dosage: 30 MCG/0.3ML DOSE CONCENTRATE FOR SUSPENSION FOR INJECTION MULTI DOSE
     Route: 030
     Dates: start: 20210212

REACTIONS (1)
  - Neutropenic sepsis [Unknown]
